FAERS Safety Report 5763090-X (Version None)
Quarter: 2008Q2

REPORT INFORMATION
  Report Type: 
  Country: None (occurrence: None)
  Receive Date: 20080609
  Receipt Date: 20080528
  Transmission Date: 20081010
  Serious: Yes (Disabling, Other)
  Sender: FDA-Public Use
  Company Number: US-PFIZER INC-2008039203

PATIENT
  Sex: Female
  Weight: 86 kg

DRUGS (4)
  1. AROMASIN [Suspect]
     Indication: BREAST CANCER
     Route: 048
     Dates: start: 20080310, end: 20080430
  2. TYLOX [Concomitant]
  3. VITAMIN D [Concomitant]
  4. CALCIUM [Concomitant]

REACTIONS (4)
  - FATIGUE [None]
  - JOINT SWELLING [None]
  - LEUKOPENIA [None]
  - OVARIAN HAEMATOMA [None]
